FAERS Safety Report 15678150 (Version 1)
Quarter: 2018Q4

REPORT INFORMATION
  Report Type: Other
  Country: None (occurrence: US)
  Receive Date: 20181201
  Receipt Date: 20181201
  Transmission Date: 20190205
  Serious: Yes (Life-Threatening)
  Sender: FDA-Public Use
  Company Number: US-STANDARD HOMEOPATHIC COMPANY-2059504

PATIENT
  Age: 7 Month
  Sex: Female

DRUGS (3)
  1. HYLAND^S BABY NIGHTTIME MUCUS+COLD (HOMEOPATHICS) [Suspect]
     Active Substance: HOMEOPATHICS
     Indication: SECRETION DISCHARGE
     Route: 048
     Dates: start: 20181122, end: 20181122
  2. HYLAND^S BABY NIGHTTIME MUCUS+COLD (HOMEOPATHICS) [Suspect]
     Active Substance: HOMEOPATHICS
     Indication: NASOPHARYNGITIS
     Route: 048
     Dates: start: 20181122, end: 20181122
  3. HYLAND^S BABY NIGHTTIME MUCUS+COLD (HOMEOPATHICS) [Suspect]
     Active Substance: HOMEOPATHICS
     Indication: INSOMNIA
     Route: 048
     Dates: start: 20181122, end: 20181122

REACTIONS (1)
  - Choking sensation [Recovered/Resolved]

NARRATIVE: CASE EVENT DATE: 20181122
